FAERS Safety Report 8363403-9 (Version None)
Quarter: 2012Q2

REPORT INFORMATION
  Report Type: 
  Country: None (occurrence: None)
  Receive Date: 20120516
  Receipt Date: 20120110
  Transmission Date: 20120825
  Serious: Yes (Hospitalization)
  Sender: FDA-Public Use
  Company Number: US-ALEXION-A201101807

PATIENT
  Sex: Male
  Weight: 76.19 kg

DRUGS (3)
  1. PERCOCET [Concomitant]
     Dosage: 7.5 MG, PRN
  2. SOLIRIS [Suspect]
     Indication: PAROXYSMAL NOCTURNAL HAEMOGLOBINURIA
     Dosage: 1200 MG, Q12 DAYS
     Route: 042
  3. PREDNISONE [Concomitant]
     Dosage: 20 MG, UNK

REACTIONS (4)
  - BACK PAIN [None]
  - INTERVERTEBRAL DISC PROTRUSION [None]
  - OSTEOPOROSIS [None]
  - TRANSFUSION [None]
